FAERS Safety Report 6636973-6 (Version None)
Quarter: 2010Q1

REPORT INFORMATION
  Report Type: 
  Country: None (occurrence: None)
  Receive Date: 20100316
  Receipt Date: 20100212
  Transmission Date: 20100710
  Serious: Yes (Other)
  Sender: FDA-Public Use
  Company Number: GB-MILLENNIUM PHARMACEUTICALS, INC.-2010-00921

PATIENT

DRUGS (10)
  1. VELCADE [Suspect]
     Indication: MULTIPLE MYELOMA
     Dosage: 2.4 MG, UNK
     Route: 042
     Dates: start: 20090914
  2. VELCADE [Suspect]
     Dosage: 1.9 MG, UNK
     Route: 042
  3. VELCADE [Suspect]
     Dosage: 1.4 MG, UNK
     Route: 042
     Dates: end: 20091217
  4. ASPIRIN [Concomitant]
     Indication: POLYCYTHAEMIA VERA
     Dosage: UNK
  5. PLAVIX [Concomitant]
     Indication: POLYCYTHAEMIA VERA
     Dosage: UNK
  6. CLEXANE [Concomitant]
     Indication: POLYCYTHAEMIA VERA
     Dosage: UNK
  7. WARFARIN SODIUM [Concomitant]
     Indication: POLYCYTHAEMIA VERA
     Dosage: UNK
  8. ZOMETA [Concomitant]
     Indication: MULTIPLE MYELOMA
     Dosage: UNK
  9. MOVICOL                            /01053601/ [Concomitant]
     Indication: CONSTIPATION
  10. FLOXACILLIN SODIUM [Concomitant]
     Indication: LOCALISED INFECTION

REACTIONS (3)
  - COLITIS [None]
  - DRUG INEFFECTIVE [None]
  - ENTEROVESICAL FISTULA [None]
